FAERS Safety Report 10249239 (Version 1)
Quarter: 2014Q2

REPORT INFORMATION
  Report Type: Spontaneous
  Country: US (occurrence: None)
  Receive Date: 20140618
  Receipt Date: 20140618
  Transmission Date: 20141212
  Serious: Yes (Other)
  Sender: FDA-Public Use
  Company Number: None

PATIENT
  Age: 18 Year
  Sex: Male
  Weight: 104.33 kg

DRUGS (3)
  1. LAMOTRIGINE 200 MG TABLETS [Suspect]
     Indication: BIPOLAR DISORDER
     Dosage: 2 PILLS, QD, ORAL
     Route: 048
     Dates: start: 20131211, end: 20140617
  2. SERTALINE HC1 TABLETS/ MFR UNKNOWN [Concomitant]
  3. ZIPRASIDONE [Concomitant]

REACTIONS (1)
  - Alopecia [None]
